FAERS Safety Report 4381964-1 (Version None)
Quarter: 2004Q2

REPORT INFORMATION
  Report Type: 
  Country: None (occurrence: None)
  Receive Date: 20040615
  Receipt Date: 20040528
  Transmission Date: 20050107
  Serious: Yes (Disabling)
  Sender: FDA-Public Use
  Company Number: 2004217869ES

PATIENT
  Age: 9 Year
  Sex: Female

DRUGS (1)
  1. TRELSTAR DEPOT [Suspect]
     Indication: PRECOCIOUS PUBERTY
     Dosage: 3.75 MG, EVERY MONTHS, INTRAMUSCULAR
     Route: 030
     Dates: start: 20020101

REACTIONS (4)
  - FACE OEDEMA [None]
  - HYPERSENSITIVITY [None]
  - NASAL CONGESTION [None]
  - PRURITUS GENERALISED [None]
